FAERS Safety Report 7774632-7 (Version None)
Quarter: 2011Q3

REPORT INFORMATION
  Report Type: 
  Country: None (occurrence: None)
  Receive Date: 20110923
  Receipt Date: 20110919
  Transmission Date: 20111222
  Serious: Yes (Hospitalization)
  Sender: FDA-Public Use
  Company Number: TR-ROCHE-803215

PATIENT
  Sex: Female
  Weight: 127 kg

DRUGS (7)
  1. METHOXY POLYETHYLENE GLYCOL-EPOETIN BETA [Suspect]
     Dosage: FREQUENCY REPORTED AS 2
     Route: 042
     Dates: start: 20100422
  2. VITAMIN B COMPLEX CAP [Concomitant]
     Dates: start: 20091110, end: 20110111
  3. FOLIC ACID [Concomitant]
     Dates: start: 20091110, end: 20110111
  4. FERRIC HYDROXIDE [Concomitant]
     Dosage: DRUG REPORTED AS FERRIC HYDROXIDE DEXTRAN
     Dates: start: 20100622, end: 20101103
  5. CALCIUM ACETATE [Concomitant]
     Dates: start: 20100216, end: 20100524
  6. SEVELAMER HYDROCHLORIDE [Concomitant]
     Dates: start: 20091110, end: 20110111
  7. ALFACALCIDOL [Concomitant]
     Dates: start: 20091110, end: 20110111

REACTIONS (1)
  - URINARY TRACT INFECTION [None]
